FAERS Safety Report 5262660-5 (Version None)
Quarter: 2007Q1

REPORT INFORMATION
  Report Type: 
  Country: None (occurrence: None)
  Receive Date: 20070312
  Receipt Date: 20070228
  Transmission Date: 20070707
  Serious: Yes (Other)
  Sender: FDA-Public Use
  Company Number: 2006UW10810

PATIENT
  Age: 49 Year
  Sex: Female
  Weight: 120.5 kg

DRUGS (3)
  1. SEROQUEL [Suspect]
     Indication: DEPRESSION
     Dosage: 20 MG
     Route: 048
  2. SEROQUEL [Suspect]
     Indication: ANXIETY
     Dosage: 20 MG
     Route: 048
  3. ZYPREXA [Concomitant]
     Dosage: 20 MG
     Dates: start: 20040101

REACTIONS (4)
  - BLOOD TRIGLYCERIDES INCREASED [None]
  - DIABETES MELLITUS [None]
  - DIABETIC KETOACIDOSIS [None]
  - OBESITY [None]
